FAERS Safety Report 13170135 (Version 4)
Quarter: 2017Q1

REPORT INFORMATION
  Report Type: Spontaneous
  Country: KR (occurrence: KR)
  Receive Date: 20170131
  Receipt Date: 20170306
  Transmission Date: 20170428
  Serious: Yes (Hospitalization)
  Sender: FDA-Public Use
  Company Number: KR-NAPPMUNDI-GBR-2017-0043158

PATIENT
  Age: 67 Year
  Sex: Female

DRUGS (1)
  1. NORSPAN [Suspect]
     Active Substance: BUPRENORPHINE
     Indication: FRACTURE PAIN
     Dosage: 5 MCG, Q1H
     Route: 062
     Dates: start: 20170118, end: 20170119

REACTIONS (7)
  - Drug administered at inappropriate site [Unknown]
  - Epistaxis [Unknown]
  - Headache [Not Recovered/Not Resolved]
  - Vomiting [Not Recovered/Not Resolved]
  - Weight decreased [Unknown]
  - Nausea [Not Recovered/Not Resolved]
  - Dizziness [Not Recovered/Not Resolved]

NARRATIVE: CASE EVENT DATE: 201701
